FAERS Safety Report 9748890 (Version 2)
Quarter: 2013Q4

REPORT INFORMATION
  Report Type: Spontaneous
  Country: US (occurrence: US)
  Receive Date: 20131212
  Receipt Date: 20131212
  Transmission Date: 20140711
  Serious: No
  Sender: FDA-Public Use
  Company Number: US-INCYTE CORPORATION-2013IN001943

PATIENT
  Sex: Female

DRUGS (21)
  1. JAKAFI [Suspect]
     Indication: MYELOFIBROSIS
     Dosage: 5 MG, BID (1 TABLET TWICE A DAY)
     Route: 048
     Dates: start: 20130725
  2. VOLTAREN [Concomitant]
  3. TRAMADOL HCL [Concomitant]
  4. DOXAZOSIN MESYLATE [Concomitant]
  5. HYDROXYUREA [Concomitant]
  6. PROMETHAZINE [Concomitant]
  7. BENADRYL ITCH STOPPING CREAM [Concomitant]
  8. LIDODERM [Concomitant]
     Dosage: 5 %
     Route: 062
  9. SSD CREAM [Concomitant]
     Dosage: 1 %
  10. LOSARTAN POTASSIUM [Concomitant]
  11. FUROSEMIDE [Concomitant]
  12. ASA [Concomitant]
     Dosage: 81 MG, UNK
  13. ZOFRAN [Concomitant]
  14. METOPROLOL SUCCINATE ER [Concomitant]
  15. NEXIUM [Concomitant]
  16. ZYRTEC [Concomitant]
  17. HYDRALAZINE [Concomitant]
  18. METAMUCIL [Concomitant]
  19. ZAROXOLYN [Concomitant]
  20. VITAMIN D3 [Concomitant]
     Dosage: 50000 IU, UNK
  21. DAILY MULTIVITAMIN [Concomitant]

REACTIONS (3)
  - Insomnia [Unknown]
  - Musculoskeletal pain [Unknown]
  - Platelet count decreased [Unknown]
